FAERS Safety Report 18043794 (Version 1)
Quarter: 2020Q3

REPORT INFORMATION
  Report Type: Spontaneous
  Country: US (occurrence: US)
  Receive Date: 20200720
  Receipt Date: 20200720
  Transmission Date: 20201103
  Serious: Yes (Hospitalization)
  Sender: FDA-Public Use
  Company Number: None

PATIENT
  Age: 78 Year
  Sex: Male

DRUGS (1)
  1. SEMAGLUTIDE (SEMAGLUTIDE 1MG/0.75ML INJ, SOLN, PEN, 1.5ML) [Suspect]
     Active Substance: SEMAGLUTIDE
     Indication: DIABETES MELLITUS
     Route: 058
     Dates: start: 20200618, end: 20200713

REACTIONS (3)
  - Hypophagia [None]
  - Lactic acidosis [None]
  - Acute kidney injury [None]

NARRATIVE: CASE EVENT DATE: 20200713
